FAERS Safety Report 10081026 (Version 1)
Quarter: 2014Q2

REPORT INFORMATION
  Report Type: Spontaneous
  Country: US (occurrence: None)
  Receive Date: 20140414
  Receipt Date: 20140414
  Transmission Date: 20141212
  Serious: Yes (Disabling)
  Sender: FDA-Public Use
  Company Number: 2014US0175

PATIENT
  Sex: Female

DRUGS (1)
  1. ORFADIN (NITISINONE) [Suspect]
     Indication: TYROSINAEMIA
     Route: 048

REACTIONS (1)
  - Attention deficit/hyperactivity disorder [None]
